FAERS Safety Report 4924646-7 (Version None)
Quarter: 2006Q1

REPORT INFORMATION
  Report Type: 
  Country: None (occurrence: None)
  Receive Date: 20060222
  Receipt Date: 20060210
  Transmission Date: 20060701
  Serious: Yes (Life-Threatening, Hospitalization)
  Sender: FDA-Public Use
  Company Number: 2006021330

PATIENT
  Age: 71 Year
  Sex: Female

DRUGS (4)
  1. FLUCONAZOLE [Suspect]
     Indication: VULVOVAGINAL MYCOTIC INFECTION
     Dosage: ORAL
     Route: 048
     Dates: start: 20051023, end: 20051025
  2. AMARYL [Suspect]
     Indication: ILL-DEFINED DISORDER
     Dosage: ORAL
     Route: 048
  3. PREVISCAN (FLUINDIONE) [Suspect]
     Indication: ILL-DEFINED DISORDER
     Dosage: (20 MG) ORAL
     Route: 048
  4. FERROUS SULFATE TAB [Concomitant]

REACTIONS (9)
  - COAGULATION TIME PROLONGED [None]
  - CONFUSIONAL STATE [None]
  - DRUG INTERACTION [None]
  - FAECES DISCOLOURED [None]
  - HYPOGLYCAEMIA [None]
  - HYPONATRAEMIA [None]
  - INTERNATIONAL NORMALISED RATIO INCREASED [None]
  - OVERDOSE [None]
  - SOMNOLENCE [None]
